FAERS Safety Report 6642914-8 (Version None)
Quarter: 2010Q1

REPORT INFORMATION
  Report Type: 
  Country: None (occurrence: None)
  Receive Date: 20100319
  Receipt Date: 20100304
  Transmission Date: 20100710
  Serious: Yes (Other)
  Sender: FDA-Public Use
  Company Number: GB-JNJFOC-20100302957

PATIENT
  Sex: Female

DRUGS (1)
  1. GALANTAMINE HYDROBROMIDE [Suspect]
     Indication: DRUG USE FOR UNKNOWN INDICATION
     Route: 048

REACTIONS (11)
  - ACCIDENTAL OVERDOSE [None]
  - DELIRIUM [None]
  - DEMENTIA [None]
  - DRUG ABUSE [None]
  - ENCEPHALITIS [None]
  - ENCEPHALOPATHY [None]
  - GASTROINTESTINAL DISORDER [None]
  - MEDICATION ERROR [None]
  - MENINGITIS NONINFECTIVE [None]
  - NAUSEA [None]
  - SOMNOLENCE [None]
